FAERS Safety Report 8427039-3 (Version None)
Quarter: 2012Q2

REPORT INFORMATION
  Report Type: 
  Country: None (occurrence: None)
  Receive Date: 20120611
  Receipt Date: 20120605
  Transmission Date: 20120825
  Serious: Yes (Other)
  Sender: FDA-Public Use
  Company Number: FR-ROCHE-1075699

PATIENT
  Age: 66 Year
  Sex: Female

DRUGS (5)
  1. NOCERTONE [Concomitant]
     Route: 065
  2. PEGASYS [Suspect]
     Indication: HEPATITIS C
     Route: 058
     Dates: start: 20110901
  3. ASPIRIN [Concomitant]
     Route: 065
  4. COPEGUS [Suspect]
     Indication: HEPATITIS C
     Route: 048
     Dates: start: 20110901
  5. NEORECORMON [Concomitant]
     Route: 065

REACTIONS (4)
  - FATIGUE [None]
  - ANAEMIA [None]
  - CEREBROVASCULAR ACCIDENT [None]
  - PARKINSONISM [None]
